FAERS Safety Report 7328292-X (Version None)
Quarter: 2011Q1

REPORT INFORMATION
  Report Type: 
  Country: None (occurrence: None)
  Receive Date: 20110224
  Receipt Date: 20110224
  Transmission Date: 20110831
  Serious: Yes (Other)
  Sender: FDA-Public Use
  Company Number: None

PATIENT
  Sex: Female
  Weight: 76.4 kg

DRUGS (1)
  1. ZOCOR [Suspect]
     Indication: BLOOD CHOLESTEROL INCREASED
     Dosage: ZOCOR 1 A DAY
     Dates: start: 20060101, end: 20110101

REACTIONS (29)
  - CHROMATURIA [None]
  - FLUSHING [None]
  - LIP SWELLING [None]
  - OEDEMA PERIPHERAL [None]
  - EYE SWELLING [None]
  - DYSPHONIA [None]
  - HAIR DISORDER [None]
  - FATIGUE [None]
  - RASH [None]
  - SWELLING FACE [None]
  - SPEECH DISORDER [None]
  - CHILLS [None]
  - BLISTER [None]
  - URTICARIA [None]
  - SWOLLEN TONGUE [None]
  - STRESS [None]
  - MUSCULAR WEAKNESS [None]
  - PYREXIA [None]
  - DYSPNOEA [None]
  - DYSPHAGIA [None]
  - INFLUENZA [None]
  - ASTHENIA [None]
  - IMPAIRED WORK ABILITY [None]
  - PRURITUS [None]
  - PHARYNGEAL OEDEMA [None]
  - ARTHRALGIA [None]
  - TOOTH DISORDER [None]
  - MYALGIA [None]
  - WEIGHT INCREASED [None]
